FAERS Safety Report 8471863-8 (Version None)
Quarter: 2012Q2

REPORT INFORMATION
  Report Type: 
  Country: None (occurrence: None)
  Receive Date: 20120627
  Receipt Date: 20120621
  Transmission Date: 20120825
  Serious: Yes (Hospitalization)
  Sender: FDA-Public Use
  Company Number: ES-BAYER-2012-016397

PATIENT
  Age: 58 Year
  Sex: Male

DRUGS (17)
  1. AMLODIPINE BESYLATE [Concomitant]
     Indication: HYPERTENSION
     Dosage: 10 MG, QD
     Dates: start: 20100601, end: 20120201
  2. OMEPRAZOLE SODIUM [Concomitant]
     Dosage: 20 MG, QD
     Dates: start: 20111114
  3. ATORVASTATIN CALCIUM [Concomitant]
     Indication: DYSLIPIDAEMIA
     Dosage: 20 MG, QD
     Dates: start: 20111122, end: 20120201
  4. COLCHIMAX [COLCHICINE,PAPAVER SOMNIFERUM POWDER,TIEMONIUM METHYLSU [Concomitant]
     Indication: PROPHYLAXIS
     Dosage: 1 DF, 0.5/5 MG BID
     Dates: start: 20120118
  5. SORAFENIB (RAF KINASE INHIBITOR) [Suspect]
     Indication: HEPATIC NEOPLASM MALIGNANT
     Dosage: 200 MG, UNK
     Route: 048
     Dates: start: 20110620, end: 20120125
  6. TELMISARTAN AND HYDROCHLOROTHIAZIDE [Concomitant]
     Indication: HYPERTENSION
     Dosage: 1 DF, 80/12.5 MG QD
     Dates: start: 20100601
  7. POTASSIUM CHLORIDE [Concomitant]
     Indication: BLOOD POTASSIUM DECREASED
     Dosage: 600 MG, TID
     Dates: start: 20110628, end: 20120201
  8. AMLODIPINE BESYLATE [Concomitant]
     Dosage: 5 G, QD
     Dates: start: 20120104, end: 20120201
  9. CARVEDILOL [Concomitant]
     Indication: HYPERCHOLESTEROLAEMIA
     Dosage: 6.25 MG, BID
     Dates: start: 20100601, end: 20120201
  10. HYOSCINE BUTYLBROMIDE [Concomitant]
     Indication: ABDOMINAL PAIN UPPER
     Dosage: 10 MG, BID
     Dates: start: 20110929
  11. ACETAMINOPHEN [Concomitant]
     Indication: CRYSTAL ARTHROPATHY
     Dosage: 1 G, PRN
     Dates: start: 20111114
  12. NOLOTIL [Concomitant]
     Indication: PAIN IN EXTREMITY
     Dosage: 1 G, QID
     Dates: start: 20110930
  13. PANTOPRAZOLE [Concomitant]
     Indication: PROPHYLAXIS
     Dosage: 40 MG, QD
     Dates: start: 20100601
  14. TRAMADOL HCL [Concomitant]
     Indication: PAIN
     Dosage: 100 MG, QD
     Dates: start: 20110527
  15. OMEPRAZOLE SODIUM [Concomitant]
     Indication: PROPHYLAXIS
     Dosage: 20 MG, QD
     Dates: start: 20111114
  16. DILTIAZEM HYDROCHLORIDE [Concomitant]
     Indication: HYPERTENSION
     Dosage: 120 MG, QD
     Dates: start: 20100601, end: 20120201
  17. TIOTROPIUM BROMIDE [Concomitant]
     Indication: PRODUCT USED FOR UNKNOWN INDICATION
     Dosage: 18 ?G, BID
     Dates: start: 20110801

REACTIONS (2)
  - CHEST PAIN [None]
  - ATRIOVENTRICULAR BLOCK SECOND DEGREE [None]
